FAERS Safety Report 4977397-7 (Version None)
Quarter: 2006Q2

REPORT INFORMATION
  Report Type: 
  Country: None (occurrence: None)
  Receive Date: 20060413
  Receipt Date: 20060403
  Transmission Date: 20061013
  Serious: Yes (Death)
  Sender: FDA-Public Use
  Company Number: GXKR2006GB01922

PATIENT
  Age: 62 Year
  Sex: Male
  Weight: 95 kg

DRUGS (2)
  1. CITALOPRAM (NGX) (CITALOPRAM) [Suspect]
     Indication: DEPRESSED MOOD
     Dosage: 20 MG, QD, ORAL
     Route: 048
     Dates: start: 20060117
  2. CO-CODAMOL (CODEINE PHOSPHATE, PARACETAMOL) [Concomitant]

REACTIONS (1)
  - COMPLETED SUICIDE [None]
